FAERS Safety Report 8800098 (Version 2)
Quarter: 2012Q4

REPORT INFORMATION
  Report Type: 
  Country: BR (occurrence: BR)
  Receive Date: 20120921
  Receipt Date: 20121010
  Transmission Date: 20130627
  Serious: Yes (Other)
  Sender: FDA-Public Use
  Company Number: PHHY2012BR077775

PATIENT
  Age: 58 Year
  Sex: Female
  Weight: 42 kg

DRUGS (4)
  1. SINVASTACOR [Suspect]
     Indication: HYPERCHOLESTEROLAEMIA
     Dosage: 10 mg,tablet once daily at night before sleep
     Route: 048
  2. SINVASTACOR [Suspect]
     Dosage: 20 mg,1 tablet daily before bedtime
     Route: 048
     Dates: start: 201112
  3. SINVASTACOR [Suspect]
     Dosage: 20 mg,1 tablet daily before bedtime
     Route: 048
     Dates: start: 201112
  4. LEVOTHYROXINE SODIUM [Concomitant]
     Indication: THYROID DISORDER
     Dosage: 125 mg, QD

REACTIONS (7)
  - Hypertension [Recovering/Resolving]
  - Blood pressure fluctuation [Recovering/Resolving]
  - Labyrinthitis [Recovering/Resolving]
  - Dizziness [Recovering/Resolving]
  - Headache [Recovered/Resolved]
  - Blood glucose increased [Unknown]
  - Drug ineffective [Not Recovered/Not Resolved]
